FAERS Safety Report 5145133-X (Version None)
Quarter: 2006Q4

REPORT INFORMATION
  Report Type: 
  Country: None (occurrence: None)
  Receive Date: 20061107
  Receipt Date: 20061025
  Transmission Date: 20070319
  Serious: Yes (Other)
  Sender: FDA-Public Use
  Company Number: GR-ELI_LILLY_AND_COMPANY-GR200610004559

PATIENT
  Age: 78 Year
  Sex: Female
  Weight: 75 kg

DRUGS (5)
  1. TERIPARATIDE [Suspect]
     Indication: OSTEOPOROSIS
     Dosage: 20 UG, DAILY (1/D)
     Dates: start: 20061001
  2. ARICEPT                                 /JPN/ [Concomitant]
     Indication: DEMENTIA
     Dosage: 10 MG, DAILY (1/D)
     Route: 048
     Dates: start: 20040101
  3. CIPRALEX                                /DEN/ [Concomitant]
     Indication: DEPRESSION
     Dosage: 20 MG, DAILY (1/D)
     Route: 048
     Dates: start: 20040101
  4. PLAVIX                                  /UNK/ [Concomitant]
     Dosage: UNK, UNKNOWN
     Route: 048
     Dates: start: 20040101
  5. ANTIHYPERTENSIVES [Concomitant]
     Indication: HYPERTENSION

REACTIONS (3)
  - BACK PAIN [None]
  - FACE OEDEMA [None]
  - INSOMNIA [None]
